FAERS Safety Report 11816375 (Version 1)
Quarter: 2015Q4

REPORT INFORMATION
  Report Type: Other
  Country: GB (occurrence: GB)
  Receive Date: 20151209
  Receipt Date: 20151209
  Transmission Date: 20160305
  Serious: Yes (Other)
  Sender: FDA-Public Use
  Company Number: GB-MYLANLABS-2015M1042697

PATIENT

DRUGS (2)
  1. IBUPROFEN LYSINE [Suspect]
     Active Substance: IBUPROFEN LYSINE
     Indication: ARTHRALGIA
     Dosage: UNK (VARIABLE SPORADIC AS NEEDED.  ONE TABLET BEFORE BED WITH FOOD)
     Route: 048
  2. IBUPROFEN. [Suspect]
     Active Substance: IBUPROFEN
     Indication: ARTHRALGIA
     Dosage: 1 DF, QD (MID MORNING)

REACTIONS (4)
  - Asthenia [Recovered/Resolved]
  - Pallor [Recovered/Resolved]
  - Dizziness [Recovered/Resolved]
  - Hypoglycaemia [Recovered/Resolved]
